FAERS Safety Report 17538437 (Version 2)
Quarter: 2020Q3

REPORT INFORMATION
  Report Type: Report from Study
  Country: DE (occurrence: DE)
  Receive Date: 20200313
  Receipt Date: 20200319
  Transmission Date: 20201105
  Serious: Yes (Life-Threatening, Other)
  Sender: FDA-Public Use
  Company Number: DE-CLINIGEN GROUP PLC/ CLINIGEN HEALTHCARE LTD-DE-CLGN-20-00106

PATIENT
  Age: 47 Year
  Sex: Male
  Weight: 94 kg

DRUGS (4)
  1. FLUDARABINE [Suspect]
     Active Substance: FLUDARABINE PHOSPHATE
     Indication: METASTATIC MALIGNANT MELANOMA
     Dates: start: 20190926, end: 20190928
  2. PROLEUKIN [Suspect]
     Active Substance: ALDESLEUKIN
     Indication: METASTATIC MALIGNANT MELANOMA
     Dates: start: 20191002, end: 20191002
  3. LIFILEUCEL. [Suspect]
     Active Substance: LIFILEUCEL
     Indication: METASTATIC MALIGNANT MELANOMA
     Dates: start: 20191001, end: 20191001
  4. CYCLOPHOSPHAMIDE. [Suspect]
     Active Substance: CYCLOPHOSPHAMIDE
     Indication: METASTATIC MALIGNANT MELANOMA
     Dates: start: 20190924, end: 20190925

REACTIONS (4)
  - Haemorrhage [Recovered/Resolved]
  - Metastatic malignant melanoma [Recovered/Resolved]
  - Capillary leak syndrome [Unknown]
  - Generalised tonic-clonic seizure [Recovered/Resolved]

NARRATIVE: CASE EVENT DATE: 20191004
